FAERS Safety Report 17799685 (Version 5)
Quarter: 2021Q1

REPORT INFORMATION
  Report Type: Report from Study
  Country: None (occurrence: US)
  Receive Date: 20200518
  Receipt Date: 20210122
  Transmission Date: 20210419
  Serious: Yes (Other)
  Sender: FDA-Public Use
  Company Number: US-ABBVIE-20P-163-3408215-00

PATIENT
  Age: 81 Year
  Sex: Male

DRUGS (3)
  1. IMBRUVICA [Suspect]
     Active Substance: IBRUTINIB
     Route: 048
     Dates: start: 20191231
  2. IMBRUVICA [Suspect]
     Active Substance: IBRUTINIB
     Route: 048
     Dates: start: 202001
  3. IMBRUVICA [Suspect]
     Active Substance: IBRUTINIB
     Indication: B-CELL LYMPHOMA
     Route: 048
     Dates: start: 20190110, end: 20200516

REACTIONS (9)
  - Fatigue [Unknown]
  - Post procedural haemorrhage [Recovering/Resolving]
  - Gingivitis [Unknown]
  - Lip infection [Unknown]
  - Post procedural infection [Unknown]
  - Haemorrhage [Unknown]
  - Micrographic skin surgery [Unknown]
  - Carotid artery occlusion [Unknown]
  - Asthenia [Unknown]

NARRATIVE: CASE EVENT DATE: 2020
